FAERS Safety Report 5288342-1 (Version None)
Quarter: 2007Q2

REPORT INFORMATION
  Report Type: 
  Country: None (occurrence: None)
  Receive Date: 20070405
  Receipt Date: 20070326
  Transmission Date: 20071010
  Serious: Yes (Other)
  Sender: FDA-Public Use
  Company Number: 2007CG00368

PATIENT
  Age: 24184 Day
  Sex: Male
  Weight: 90 kg

DRUGS (6)
  1. CRESTOR [Suspect]
     Indication: DYSLIPIDAEMIA
     Route: 048
     Dates: start: 20060701, end: 20060727
  2. OMEPRAZOLE [Concomitant]
     Route: 048
  3. TRIATEC [Concomitant]
     Route: 048
  4. SOTALOL HCL [Concomitant]
     Route: 048
  5. KARDEGIC [Concomitant]
     Route: 048
  6. MEDIATOR [Concomitant]
     Route: 048

REACTIONS (2)
  - RHABDOMYOLYSIS [None]
  - TRANSAMINASES INCREASED [None]
